FAERS Safety Report 16949633 (Version 2)
Quarter: 2019Q4

REPORT INFORMATION
  Report Type: Spontaneous
  Country: ES (occurrence: ES)
  Receive Date: 20191023
  Receipt Date: 20191106
  Transmission Date: 20200122
  Serious: Yes (Hospitalization, Other)
  Sender: FDA-Public Use
  Company Number: ES-AUROBINDO-AUR-APL-2019-067813

PATIENT
  Age: 70 Year
  Sex: Male

DRUGS (2)
  1. TORASEMIDE [Suspect]
     Active Substance: TORSEMIDE
     Indication: DIURETIC THERAPY
     Dosage: 10 MILLIGRAM, ONCE A DAY
     Route: 065
  2. FUROSEMIDE. [Suspect]
     Active Substance: FUROSEMIDE
     Indication: DIURETIC THERAPY
     Dosage: 80 MILLIGRAM, ONCE A DAY
     Route: 065

REACTIONS (4)
  - Haematuria [Unknown]
  - Skin lesion [Unknown]
  - Pyrexia [Unknown]
  - Hypersensitivity vasculitis [Recovering/Resolving]
